FAERS Safety Report 4627397-1 (Version None)
Quarter: 2005Q1

REPORT INFORMATION
  Report Type: 
  Country: None (occurrence: None)
  Receive Date: 20050330
  Receipt Date: 20050316
  Transmission Date: 20050727
  Serious: Yes (Hospitalization)
  Sender: FDA-Public Use
  Company Number: WAES 0401USA50180

PATIENT
  Age: 68 Year
  Sex: Female
  Weight: 59.8748 kg

DRUGS (8)
  1. ETORICOXIB [Suspect]
     Indication: ARTHRITIS
     Dosage: 90 MG/DAILY/PO
     Route: 048
     Dates: start: 20030729, end: 20040114
  2. PLACEBO [Suspect]
     Indication: ARTHRITIS
     Dosage: BID/PO
     Route: 048
     Dates: start: 20030729, end: 20040114
  3. FOSAMAX [Suspect]
     Indication: OSTEOPENIA
     Dates: start: 20030130, end: 20040113
  4. ACETAMINOPHEN [Concomitant]
  5. CALCIUM GLUCONATE [Concomitant]
  6. FOLIC ACID [Concomitant]
  7. METHOTREXATE [Concomitant]
  8. MINERALS (UNSPECIFIED) (+) VITAM [Concomitant]

REACTIONS (7)
  - ASTHENIA [None]
  - DIFFICULTY IN WALKING [None]
  - DYSPEPSIA [None]
  - HIATUS HERNIA [None]
  - HYPOVOLAEMIA [None]
  - OESOPHAGITIS [None]
  - VOMITING [None]
